FAERS Safety Report 19193306 (Version 7)
Quarter: 2024Q1

REPORT INFORMATION
  Report Type: Report from Study
  Country: CO (occurrence: CO)
  Receive Date: 20210428
  Receipt Date: 20240206
  Transmission Date: 20240410
  Serious: Yes (Hospitalization, Other)
  Sender: FDA-Public Use
  Company Number: CO-002147023-NVSC2021CO088393

PATIENT

DRUGS (8)
  1. RUXOLITINIB [Suspect]
     Active Substance: RUXOLITINIB
     Indication: Myelofibrosis
     Dosage: 15 MG, Q12H
     Route: 065
     Dates: start: 2019
  2. RUXOLITINIB [Suspect]
     Active Substance: RUXOLITINIB
     Dosage: 15 MG, Q12H
     Route: 048
     Dates: start: 20200630
  3. RUXOLITINIB [Suspect]
     Active Substance: RUXOLITINIB
     Dosage: 2 DF (IN THE MORNING AND IN THE NIGHT)
     Route: 048
  4. RUXOLITINIB [Suspect]
     Active Substance: RUXOLITINIB
     Dosage: 1 DF, DAILY
     Route: 048
  5. RUXOLITINIB [Suspect]
     Active Substance: RUXOLITINIB
     Dosage: 15 MG, Q12H
     Route: 048
  6. RUXOLITINIB [Suspect]
     Active Substance: RUXOLITINIB
     Dosage: 30 MG, QD
     Route: 048
  7. RUXOLITINIB [Suspect]
     Active Substance: RUXOLITINIB
     Dosage: 15 MG, Q12H
     Route: 048
  8. ESOMEPRAZOLE [Concomitant]
     Active Substance: ESOMEPRAZOLE
     Indication: Product used for unknown indication
     Dosage: UNK
     Route: 065

REACTIONS (13)
  - Cardiovascular disorder [Unknown]
  - Carpal tunnel syndrome [Unknown]
  - Decreased immune responsiveness [Unknown]
  - Depressed mood [Unknown]
  - Feeling abnormal [Unknown]
  - Weight decreased [Unknown]
  - Haemoglobin abnormal [Unknown]
  - Emotional disorder [Unknown]
  - Product dispensing issue [Unknown]
  - Inappropriate schedule of product administration [Unknown]
  - Myelofibrosis [Unknown]
  - Disease recurrence [Unknown]
  - Pain in extremity [Unknown]
